FAERS Safety Report 6701963-1 (Version None)
Quarter: 2010Q2

REPORT INFORMATION
  Report Type: 
  Country: None (occurrence: None)
  Receive Date: 20100429
  Receipt Date: 20100421
  Transmission Date: 20101027
  Serious: Yes (Death)
  Sender: FDA-Public Use
  Company Number: JP-BAXTER-2010BH010883

PATIENT
  Age: 60 Year
  Sex: Male

DRUGS (4)
  1. EXTRANEAL [Suspect]
     Indication: DIABETIC NEPHROPATHY
     Route: 033
     Dates: start: 20031001
  2. DIANEAL PD-2 W/ DEXTROSE 1.5% [Suspect]
     Indication: DIABETIC NEPHROPATHY
     Route: 033
     Dates: start: 20080401
  3. DIANEAL PD-2 W/ DEXTROSE 1.5% [Suspect]
     Indication: DIABETIC NEPHROPATHY
     Route: 033
     Dates: start: 20080401
  4. DIANEAL 137 W/ DEXTROSE 2.5% IN PLASTIC CONTAINER [Suspect]
     Indication: DIABETIC NEPHROPATHY
     Route: 033
     Dates: start: 20070801

REACTIONS (1)
  - PERITONITIS BACTERIAL [None]
